FAERS Safety Report 19743851 (Version 1)
Quarter: 2021Q3

REPORT INFORMATION
  Report Type: Spontaneous
  Country: US (occurrence: US)
  Receive Date: 20210823
  Receipt Date: 20210823
  Transmission Date: 20211014
  Serious: Yes (Other)
  Sender: FDA-Public Use
  Company Number: None

PATIENT
  Age: 47 Year
  Sex: Female
  Weight: 71.1 kg

DRUGS (2)
  1. ZYPREXA [Concomitant]
     Active Substance: OLANZAPINE
  2. OLANZAPINE 20 MG [Suspect]
     Active Substance: OLANZAPINE
     Indication: MENTAL DISORDER
     Dosage: ?          QUANTITY:14 TABLET(S);?
     Route: 048
     Dates: start: 20210811

REACTIONS (9)
  - Dysarthria [None]
  - Dizziness [None]
  - Muscle twitching [None]
  - Feeling abnormal [None]
  - Disorientation [None]
  - Disturbance in attention [None]
  - Restless legs syndrome [None]
  - Memory impairment [None]
  - Bradyphrenia [None]

NARRATIVE: CASE EVENT DATE: 20210811
